FAERS Safety Report 21911346 (Version 6)
Quarter: 2023Q2

REPORT INFORMATION
  Report Type: Report from Study
  Country: US (occurrence: US)
  Receive Date: 20230125
  Receipt Date: 20230405
  Transmission Date: 20230721
  Serious: Yes (Other)
  Sender: FDA-Public Use
  Company Number: US-SEATTLE GENETICS-2023SGN00772

PATIENT
  Sex: Female

DRUGS (1)
  1. TUCATINIB [Suspect]
     Active Substance: TUCATINIB
     Indication: Breast cancer female
     Dosage: ONE TUKYSA IN THE MORNING AND ONE IN THE EVENING
     Route: 065

REACTIONS (13)
  - Diabetes mellitus [Unknown]
  - Metastases to central nervous system [Unknown]
  - Adverse drug reaction [Recovering/Resolving]
  - Blood cholesterol increased [Unknown]
  - Vision blurred [Not Recovered/Not Resolved]
  - Insomnia [Not Recovered/Not Resolved]
  - Dry skin [Unknown]
  - Pain in extremity [Unknown]
  - Burning sensation [Unknown]
  - Product administration error [Unknown]
  - Hypertension [Unknown]
  - Mouth ulceration [Recovered/Resolved]
  - Diarrhoea [Unknown]
